FAERS Safety Report 25584694 (Version 2)
Quarter: 2025Q3

REPORT INFORMATION
  Report Type: Other
  Country: GB (occurrence: GB)
  Receive Date: 20250721
  Receipt Date: 20250805
  Transmission Date: 20251021
  Serious: Yes (Other)
  Sender: MACLEODS
  Company Number: None

PATIENT

DRUGS (18)
  1. ACYCLOVIR [Suspect]
     Active Substance: ACYCLOVIR
     Indication: Product used for unknown indication
     Dosage: 400MG DAILY
     Route: 065
     Dates: start: 20130628
  2. CELECOXIB [Suspect]
     Active Substance: CELECOXIB
     Indication: Pain
     Dosage: 200MG BD
     Route: 065
     Dates: start: 20250101
  3. DOXYCYCLINE [Suspect]
     Active Substance: DOXYCYCLINE
     Indication: Product used for unknown indication
     Dosage: 100 MG BD
     Route: 065
     Dates: start: 20250529
  4. PRAMIPEXOLE [Suspect]
     Active Substance: PRAMIPEXOLE
     Indication: Restless legs syndrome
     Dosage: 250MICROGRAMES BD
     Route: 065
     Dates: start: 20240510
  5. PREGABALIN [Suspect]
     Active Substance: PREGABALIN
     Indication: Neuralgia
     Dosage: 375MG TOTAL DAILY DOSE
     Route: 065
     Dates: start: 20240923
  6. AMITRIPTYLINE [Suspect]
     Active Substance: AMITRIPTYLINE
     Indication: Neuralgia
     Dosage: 50MG NOCTE (AT NIGHT)
     Route: 065
     Dates: start: 20250613
  7. CLADRIBINE [Suspect]
     Active Substance: CLADRIBINE
     Indication: Multiple sclerosis
     Route: 065
     Dates: start: 202503, end: 202504
  8. ESTRADIOL [Suspect]
     Active Substance: ESTRADIOL
     Indication: Product used for unknown indication
     Dosage: 2 PUMPS DAILY, 0.06 % TRANSDERMAL GEL
     Route: 062
     Dates: start: 20250114
  9. SENNA [Suspect]
     Active Substance: SENNOSIDES
     Indication: Constipation
     Dosage: 15MG DAILY
     Route: 065
     Dates: start: 20220823
  10. MODAFINIL [Suspect]
     Active Substance: MODAFINIL
     Indication: Fatigue
     Dosage: 200MG MANE (IN THE MORNING)
     Route: 065
     Dates: start: 20240510
  11. PROGESTERONE [Suspect]
     Active Substance: PROGESTERONE
     Indication: Product used for unknown indication
     Dosage: 100MG DAILY
     Route: 065
     Dates: start: 20230201
  12. FEXOFENADINE HYDROCHLORIDE [Suspect]
     Active Substance: FEXOFENADINE HYDROCHLORIDE
     Indication: Product used for unknown indication
     Dosage: 180MG QIDS
     Route: 065
     Dates: start: 20241218
  13. CROTAMITON [Suspect]
     Active Substance: CROTAMITON
     Indication: Product used for unknown indication
     Route: 065
     Dates: start: 20250106
  14. DIHYDROCODEINE BITARTRATE [Suspect]
     Active Substance: DIHYDROCODEINE BITARTRATE
     Indication: Product used for unknown indication
     Dosage: 60MG M/R BD
     Route: 065
     Dates: start: 20250219
  15. DIHYDROCODEINE [Suspect]
     Active Substance: DIHYDROCODEINE
     Indication: Product used for unknown indication
     Dosage: 30MG TID
     Route: 065
     Dates: start: 20250227
  16. TRIMETHOPRIM [Suspect]
     Active Substance: TRIMETHOPRIM
     Indication: Product used for unknown indication
     Dosage: 200MG BD FOR A COURSE
     Route: 065
     Dates: start: 20250429
  17. PROCHLORPERAZINE MALEATE [Suspect]
     Active Substance: PROCHLORPERAZINE MALEATE
     Indication: Urticaria
     Dosage: 5MG TID
     Route: 065
     Dates: start: 20250529
  18. Piriton BD [Concomitant]
     Indication: Product used for unknown indication
     Route: 065

REACTIONS (5)
  - Urticaria [Not Recovered/Not Resolved]
  - Pruritus [Not Recovered/Not Resolved]
  - Skin burning sensation [Not Recovered/Not Resolved]
  - Rash macular [Unknown]
  - Skin warm [Unknown]

NARRATIVE: CASE EVENT DATE: 20250301
